FAERS Safety Report 15622495 (Version 1)
Quarter: 2018Q4

REPORT INFORMATION
  Report Type: Spontaneous
  Country: US (occurrence: US)
  Receive Date: 20181115
  Receipt Date: 20181115
  Transmission Date: 20190205
  Serious: No
  Sender: FDA-Public Use
  Company Number: US-BAYER-2018-205678

PATIENT
  Age: 65 Year
  Sex: Female
  Weight: 88 kg

DRUGS (1)
  1. ZEGERID OTC CAPSULES [Suspect]
     Active Substance: OMEPRAZOLE\SODIUM BICARBONATE
     Indication: GASTROOESOPHAGEAL REFLUX DISEASE
     Dosage: 1 PER DAY
     Route: 048

REACTIONS (2)
  - Product use issue [Unknown]
  - Product use in unapproved indication [Unknown]
